FAERS Safety Report 16659490 (Version 1)
Quarter: 2019Q3

REPORT INFORMATION
  Report Type: Spontaneous
  Country: US (occurrence: US)
  Receive Date: 20190802
  Receipt Date: 20190802
  Transmission Date: 20191004
  Serious: No
  Sender: FDA-Public Use
  Company Number: US-BIOGEN-2019BI00768838

PATIENT
  Age: 53 Year
  Sex: Female

DRUGS (1)
  1. TECFIDERA [Suspect]
     Active Substance: DIMETHYL FUMARATE
     Indication: MULTIPLE SCLEROSIS
     Route: 065
     Dates: start: 20190618

REACTIONS (6)
  - Mobility decreased [Unknown]
  - Nail disorder [Unknown]
  - Skin exfoliation [Unknown]
  - Arthritis [Unknown]
  - Dry skin [Unknown]
  - Joint lock [Unknown]

NARRATIVE: CASE EVENT DATE: 20190626
